FAERS Safety Report 7321003-3 (Version None)
Quarter: 2011Q1

REPORT INFORMATION
  Report Type: 
  Country: None (occurrence: None)
  Receive Date: 20110228
  Receipt Date: 20110218
  Transmission Date: 20110831
  Serious: Yes (Other)
  Sender: FDA-Public Use
  Company Number: US-ROCHE-761947

PATIENT
  Sex: Female

DRUGS (4)
  1. PREMARIN [Suspect]
     Route: 065
  2. FOSAMAX [Suspect]
     Route: 065
  3. ACTONEL [Suspect]
     Route: 065
  4. BONIVA [Suspect]
     Route: 065

REACTIONS (7)
  - ANGIOPATHY [None]
  - SPINAL MENINGEAL CYST [None]
  - WRIST FRACTURE [None]
  - OSTEOPOROSIS [None]
  - MUSCULOSKELETAL DISORDER [None]
  - OSTEOPENIA [None]
  - PATELLA FRACTURE [None]
